FAERS Safety Report 20664733 (Version 3)
Quarter: 2022Q3

REPORT INFORMATION
  Report Type: Report from Study
  Country: JP (occurrence: JP)
  Receive Date: 20220401
  Receipt Date: 20220930
  Transmission Date: 20221026
  Serious: Yes (Death, Hospitalization, Other)
  Sender: FDA-Public Use
  Company Number: JP-ONO-2022JP008664

PATIENT
  Age: 58 Year
  Sex: Male
  Weight: 63.7 kg

DRUGS (3)
  1. BRAFTOVI [Suspect]
     Active Substance: ENCORAFENIB
     Indication: Rectal cancer
     Dosage: 225 MG, EVERYDAY
     Route: 048
     Dates: start: 20211013, end: 20211020
  2. MEKTOVI [Suspect]
     Active Substance: BINIMETINIB
     Indication: Rectal cancer
     Dosage: 60 MG, EVERYDAY
     Route: 048
     Dates: start: 20211013, end: 20211020
  3. CETUXIMAB [Concomitant]
     Active Substance: CETUXIMAB
     Indication: Rectal cancer
     Dosage: 400 MG/M2
     Route: 065
     Dates: start: 20211013, end: 20211020

REACTIONS (2)
  - Death [Fatal]
  - Pneumonia bacterial [Recovered/Resolved]

NARRATIVE: CASE EVENT DATE: 20211020
